FAERS Safety Report 7555682-2 (Version None)
Quarter: 2011Q2

REPORT INFORMATION
  Report Type: 
  Country: None (occurrence: None)
  Receive Date: 20110617
  Receipt Date: 20110618
  Transmission Date: 20111010
  Serious: Yes (Other)
  Sender: FDA-Public Use
  Company Number: AU-AMGEN-AUSSP2011023904

PATIENT
  Age: 54 Year
  Sex: Female

DRUGS (2)
  1. NPLATE [Suspect]
     Dosage: 2 A?G/KG, UNK
  2. NPLATE [Suspect]
     Indication: IDIOPATHIC THROMBOCYTOPENIC PURPURA
     Dosage: 75 A?G, QWK
     Dates: start: 20110308

REACTIONS (2)
  - PLATELET COUNT DECREASED [None]
  - RASH MACULO-PAPULAR [None]
